FAERS Safety Report 13836373 (Version 2)
Quarter: 2017Q3

REPORT INFORMATION
  Report Type: Report from Study
  Country: AR (occurrence: AR)
  Receive Date: 20170804
  Receipt Date: 20170822
  Transmission Date: 20171127
  Serious: Yes (Hospitalization, Disabling)
  Sender: FDA-Public Use
  Company Number: PHHY2017AR114122

PATIENT
  Sex: Female

DRUGS (4)
  1. EXFORGE [Suspect]
     Active Substance: AMLODIPINE BESYLATE\VALSARTAN
     Dosage: 1 DF, QOD
     Route: 065
  2. DIOVAN D [Suspect]
     Active Substance: HYDROCHLOROTHIAZIDE\VALSARTAN
     Indication: HYPERTENSION
     Dosage: 1 DF (80MG), QD
     Route: 065
     Dates: start: 2010, end: 2010
  3. EXFORGE [Suspect]
     Active Substance: AMLODIPINE BESYLATE\VALSARTAN
     Indication: HYPERTENSION
     Dosage: 1 DF (AMLODIPINE 5/VALSARTAN 160MG), QD
     Route: 065
     Dates: start: 2010
  4. EXFORGE [Suspect]
     Active Substance: AMLODIPINE BESYLATE\VALSARTAN
     Dosage: 1 DF (AMLODIPINE 5/VALSARTAN 80), QD
     Route: 065
     Dates: start: 2010

REACTIONS (12)
  - Peripheral swelling [Not Recovered/Not Resolved]
  - Inappropriate schedule of drug administration [Unknown]
  - Device failure [Unknown]
  - Spinal pain [Unknown]
  - Pain [Not Recovered/Not Resolved]
  - Spinal disorder [Unknown]
  - Gait disturbance [Unknown]
  - Scoliosis [Unknown]
  - Blood pressure decreased [Not Recovered/Not Resolved]
  - Blood pressure abnormal [Unknown]
  - Depression [Not Recovered/Not Resolved]
  - Intervertebral disc protrusion [Unknown]

NARRATIVE: CASE EVENT DATE: 2010
